FAERS Safety Report 9928454 (Version 1)
Quarter: 2014Q1

REPORT INFORMATION
  Report Type: Not Available
  Country: JP (occurrence: JP)
  Receive Date: 20140227
  Receipt Date: 20140227
  Transmission Date: 20141002
  Serious: Yes (Hospitalization)
  Sender: FDA-Public Use
  Company Number: JP-ASTELLAS-2014JP001462

PATIENT
  Age: 12 Year
  Sex: Male
  Weight: 28.4 kg

DRUGS (7)
  1. PROGRAF [Suspect]
     Indication: IMMUNOSUPPRESSANT DRUG THERAPY
     Dosage: 3 MG, BID
     Route: 048
     Dates: start: 20130827, end: 20140206
  2. PREDONINE /00016201/ [Suspect]
     Indication: IMMUNOSUPPRESSANT DRUG THERAPY
     Dosage: 5 MG, BID
     Route: 048
     Dates: start: 20131113, end: 20140206
  3. BAKTAR [Concomitant]
     Route: 048
  4. SELBEX [Concomitant]
     Route: 048
  5. ZOVIRAX                            /00587301/ [Concomitant]
     Route: 065
  6. ASVERIN                            /00465502/ [Concomitant]
     Route: 048
  7. MUCODYNE [Concomitant]
     Route: 048

REACTIONS (1)
  - Diabetic ketoacidosis [Recovered/Resolved]
